FAERS Safety Report 9911533 (Version 2)
Quarter: 2014Q1

REPORT INFORMATION
  Report Type: Report from Study
  Country: CA (occurrence: CA)
  Receive Date: 20140219
  Receipt Date: 20140219
  Transmission Date: 20141002
  Serious: Yes (Death)
  Sender: FDA-Public Use
  Company Number: PHHY2012CA023659

PATIENT
  Age: 81 Year
  Sex: Female

DRUGS (1)
  1. SANDOSTATIN LAR [Suspect]
     Indication: NEUROENDOCRINE CARCINOMA
     Dosage: 30 MG, EVERY 4 WEEKS
     Route: 030
     Dates: start: 20111003, end: 20140117

REACTIONS (12)
  - Death [Fatal]
  - Eating disorder [Unknown]
  - Weight decreased [Unknown]
  - Nausea [Not Recovered/Not Resolved]
  - Hepatic lesion [Unknown]
  - Emotional distress [Unknown]
  - Anxiety [Unknown]
  - Blood pressure increased [Unknown]
  - Stress [Unknown]
  - Flatulence [Unknown]
  - Constipation [Not Recovered/Not Resolved]
  - Painful defaecation [Unknown]
